FAERS Safety Report 19029947 (Version 2)
Quarter: 2021Q1

REPORT INFORMATION
  Report Type: Spontaneous
  Country: JP (occurrence: JP)
  Receive Date: 20210318
  Receipt Date: 20210331
  Transmission Date: 20210420
  Serious: Yes (Death)
  Sender: FDA-Public Use
  Company Number: NVSC2021JP062119

PATIENT
  Age: 63 Year
  Sex: Male

DRUGS (8)
  1. ETOPOSIDE. [Suspect]
     Active Substance: ETOPOSIDE
     Indication: MYELODYSPLASTIC SYNDROME
     Route: 065
  2. ETOPOSIDE. [Suspect]
     Active Substance: ETOPOSIDE
     Indication: MYELOPROLIFERATIVE NEOPLASM
  3. DEXAMETHASONE. [Suspect]
     Active Substance: DEXAMETHASONE
     Indication: MYELOPROLIFERATIVE NEOPLASM
  4. IFOSFAMIDE. [Suspect]
     Active Substance: IFOSFAMIDE
     Indication: MYELOPROLIFERATIVE NEOPLASM
  5. L?ASPARAGINASE [Suspect]
     Active Substance: ASPARAGINASE
     Indication: MYELODYSPLASTIC SYNDROME
     Dosage: 4000 U/M2 (DAY 7, 9, 11, 13, 15, 17, AND 19)
     Route: 065
  6. DEXAMETHASONE. [Suspect]
     Active Substance: DEXAMETHASONE
     Indication: MYELODYSPLASTIC SYNDROME
     Dosage: 30 MG DAY 1?3
     Route: 065
  7. L?ASPARAGINASE [Suspect]
     Active Substance: ASPARAGINASE
     Indication: MYELOPROLIFERATIVE NEOPLASM
  8. IFOSFAMIDE. [Suspect]
     Active Substance: IFOSFAMIDE
     Indication: MYELODYSPLASTIC SYNDROME
     Dosage: 1050 MG/M2 DAY 1?3
     Route: 065

REACTIONS (2)
  - Tumour lysis syndrome [Fatal]
  - Product use in unapproved indication [Unknown]
